FAERS Safety Report 21680476 (Version 2)
Quarter: 2022Q4

REPORT INFORMATION
  Report Type: Spontaneous
  Country: US (occurrence: US)
  Receive Date: 20221205
  Receipt Date: 20221219
  Transmission Date: 20230113
  Serious: No
  Sender: FDA-Public Use
  Company Number: US-JNJFOC-20221204780

PATIENT
  Age: 59 Year
  Sex: Female

DRUGS (2)
  1. TYLENOL [Suspect]
     Active Substance: ACETAMINOPHEN
     Indication: Headache
     Route: 065
     Dates: start: 202211
  2. TREMFYA [Concomitant]
     Active Substance: GUSELKUMAB
     Indication: Psoriasis
     Dosage: 100 MG WEEK 0, STRENGTH 100 MG/1ML
     Route: 058
     Dates: start: 20221118

REACTIONS (1)
  - Drug ineffective [Unknown]

NARRATIVE: CASE EVENT DATE: 20221101
